FAERS Safety Report 15481610 (Version 2)
Quarter: 2019Q4

REPORT INFORMATION
  Report Type: Spontaneous
  Country: JP (occurrence: JP)
  Receive Date: 20181010
  Receipt Date: 20191218
  Transmission Date: 20200122
  Serious: Yes (Hospitalization, Other)
  Sender: FDA-Public Use
  Company Number: JP-TEVA-201804_00001706

PATIENT
  Age: 11 Year
  Sex: Male

DRUGS (1)
  1. PREDNISOLONE TABLETS 5MG [Suspect]
     Active Substance: PREDNISOLONE
     Indication: DUCHENNE MUSCULAR DYSTROPHY
     Dosage: DOSE: 15 TO 25MG PER DAY
     Route: 048

REACTIONS (3)
  - Femoral neck fracture [Recovered/Resolved]
  - Stress fracture [Recovered/Resolved]
  - Osteoporosis [Recovering/Resolving]
